FAERS Safety Report 4902584-3 (Version None)
Quarter: 2006Q1

REPORT INFORMATION
  Report Type: 
  Country: None (occurrence: None)
  Receive Date: 20060113
  Receipt Date: 20050504
  Transmission Date: 20060701
  Serious: Yes (Other)
  Sender: FDA-Public Use
  Company Number: 2005071823

PATIENT
  Age: 30 Year
  Sex: Male

DRUGS (2)
  1. FLUCONAZOLE [Suspect]
     Indication: COCCIDIOIDOMYCOSIS
     Dosage: 800 MG
     Dates: start: 19940101
  2. AMPHOTERICIN B [Concomitant]

REACTIONS (1)
  - DRUG INEFFECTIVE [None]
